FAERS Safety Report 5706351-2 (Version None)
Quarter: 2008Q2

REPORT INFORMATION
  Report Type: 
  Country: None (occurrence: None)
  Receive Date: 20080411
  Receipt Date: 20080331
  Transmission Date: 20081010
  Serious: Yes (Other)
  Sender: FDA-Public Use
  Company Number: 08-000540

PATIENT
  Age: 67 Year
  Sex: Female

DRUGS (1)
  1. DOVONEX [Suspect]
     Indication: PSORIASIS
     Dosage: 0.005 %, BID, TOPICAL
     Route: 061

REACTIONS (6)
  - ABDOMINAL PAIN [None]
  - BLOOD CALCIUM INCREASED [None]
  - INCORRECT DOSE ADMINISTERED [None]
  - MUSCULAR WEAKNESS [None]
  - NAUSEA [None]
  - RENAL IMPAIRMENT [None]
